FAERS Safety Report 9149551 (Version 1)
Quarter: 2013Q1

REPORT INFORMATION
  Report Type: Spontaneous
  Country: US (occurrence: None)
  Receive Date: 20130301
  Receipt Date: 20130301
  Transmission Date: 20140127
  Serious: Yes (Life-Threatening)
  Sender: FDA-Public Use
  Company Number: None

PATIENT
  Age: 20 Month
  Sex: Female
  Weight: 13.2 kg

DRUGS (1)
  1. PEGASPARGASE [Suspect]
     Indication: ACUTE LYMPHOCYTIC LEUKAEMIA
     Dosage: 1350 UNITS  ONCE IV
     Route: 042
     Dates: start: 20130112, end: 20130226

REACTIONS (5)
  - Cough [None]
  - Erythema [None]
  - Lip swelling [None]
  - Vomiting [None]
  - Infusion related reaction [None]
